FAERS Safety Report 12851922 (Version 2)
Quarter: 2016Q4

REPORT INFORMATION
  Report Type: Spontaneous
  Country: US (occurrence: US)
  Receive Date: 20161017
  Receipt Date: 20161118
  Transmission Date: 20170207
  Serious: No
  Sender: FDA-Public Use
  Company Number: PHEH2016US026496

PATIENT
  Sex: Female
  Weight: 150 kg

DRUGS (1)
  1. ESTRADIOL. [Suspect]
     Active Substance: ESTRADIOL
     Indication: HYSTERECTOMY
     Dosage: 0.037 MG, BIW
     Route: 062
     Dates: start: 201604

REACTIONS (2)
  - Drug ineffective [Unknown]
  - Feeling hot [Unknown]
